FAERS Safety Report 5792459-2 (Version None)
Quarter: 2008Q2

REPORT INFORMATION
  Report Type: 
  Country: None (occurrence: None)
  Receive Date: 20080626
  Receipt Date: 20080618
  Transmission Date: 20081010
  Serious: Yes (Other)
  Sender: FDA-Public Use
  Company Number: US-PFIZER INC-2008051630

PATIENT
  Sex: Female
  Weight: 200 kg

DRUGS (2)
  1. GEODON [Suspect]
     Indication: POST-TRAUMATIC STRESS DISORDER
  2. ALL OTHER THERAPEUTIC PRODUCTS [Concomitant]

REACTIONS (5)
  - AGGRESSION [None]
  - DRUG EFFECT DECREASED [None]
  - DYSSTASIA [None]
  - EXTRAPYRAMIDAL DISORDER [None]
  - SOMNOLENCE [None]
